FAERS Safety Report 10948800 (Version 1)
Quarter: 2015Q1

REPORT INFORMATION
  Report Type: Spontaneous
  Country: IT (occurrence: IT)
  Receive Date: 20150324
  Receipt Date: 20150324
  Transmission Date: 20150721
  Serious: Yes (Other)
  Sender: FDA-Public Use
  Company Number: IT-TEVA-549045ACC

PATIENT
  Age: 64 Year
  Sex: Female

DRUGS (1)
  1. GEMCITABINE [Suspect]
     Active Substance: GEMCITABINE\GEMCITABINE HYDROCHLORIDE
     Indication: PANCREATIC CARCINOMA
     Dosage: 1700 MG CYCLICAL
     Route: 042
     Dates: start: 20150121, end: 20150307

REACTIONS (2)
  - Pyrexia [Unknown]
  - Cholangitis [Unknown]

NARRATIVE: CASE EVENT DATE: 20150307
